FAERS Safety Report 16771278 (Version 1)
Quarter: 2019Q3

REPORT INFORMATION
  Report Type: Spontaneous
  Country: GB (occurrence: GB)
  Receive Date: 20190904
  Receipt Date: 20190904
  Transmission Date: 20191005
  Serious: Yes (Other)
  Sender: FDA-Public Use
  Company Number: GB-MYLANLABS-2019M1082270

PATIENT
  Age: 49 Year
  Sex: Male
  Weight: 81 kg

DRUGS (2)
  1. BETAHISTINE [Concomitant]
     Active Substance: BETAHISTINE
     Dosage: UNK
  2. CLARITHROMYCIN. [Suspect]
     Active Substance: CLARITHROMYCIN
     Indication: BURSITIS INFECTIVE
     Dosage: 1000 MILLIGRAM, QD
     Route: 048
     Dates: start: 20190313, end: 20190315

REACTIONS (3)
  - Visual impairment [Not Recovered/Not Resolved]
  - Vitreous floaters [Unknown]
  - Photopsia [Unknown]

NARRATIVE: CASE EVENT DATE: 20190313
